FAERS Safety Report 7385218-0 (Version None)
Quarter: 2011Q1

REPORT INFORMATION
  Report Type: 
  Country: None (occurrence: None)
  Receive Date: 20110330
  Receipt Date: 20110322
  Transmission Date: 20110831
  Serious: Yes (Death)
  Sender: FDA-Public Use
  Company Number: JP-AMGEN-JPNCT2010005261

PATIENT
  Age: 62 Year
  Sex: Male
  Weight: 60 kg

DRUGS (20)
  1. FLUOROURACIL [Suspect]
     Route: 041
     Dates: start: 20100730, end: 20101024
  2. RESTAMIN [Concomitant]
     Dosage: 50 MG, UNK
     Route: 048
     Dates: start: 20100702, end: 20101022
  3. GASTER D [Concomitant]
     Indication: ALLERGY PROPHYLAXIS
     Dosage: 10 MG, BID
     Route: 048
     Dates: start: 20100702, end: 20101022
  4. BETAMETHASONE [Concomitant]
     Indication: ALLERGY PROPHYLAXIS
     Route: 048
     Dates: start: 20100702, end: 20101022
  5. MUCOSTA [Concomitant]
     Indication: GASTRITIS
     Route: 048
  6. MYSLEE [Concomitant]
     Indication: INSOMNIA
     Route: 048
  7. OXALIPLATIN [Suspect]
     Indication: COLORECTAL CANCER
     Route: 041
     Dates: start: 20100730, end: 20101024
  8. CALCIUM LEVOFOLINATE [Suspect]
     Indication: COLORECTAL CANCER
     Route: 041
     Dates: start: 20100730, end: 20101024
  9. ANTIHISTAMINES [Concomitant]
     Indication: PROPHYLAXIS
     Route: 065
  10. KYTRIL [Concomitant]
     Indication: PROPHYLAXIS OF NAUSEA AND VOMITING
     Route: 042
     Dates: start: 20100702, end: 20101022
  11. MAINTATE [Concomitant]
     Indication: HYPERTENSION
     Route: 048
  12. AMLODIN OD [Concomitant]
     Indication: HYPERTENSION
     Route: 048
  13. KERATINAMIN KOWA OINTMENT [Concomitant]
     Dosage: UNK
     Route: 062
     Dates: start: 20100827, end: 20101022
  14. DECADRON [Concomitant]
     Indication: PROPHYLAXIS OF NAUSEA AND VOMITING
     Route: 042
     Dates: start: 20100702, end: 20101022
  15. CRESTOR [Concomitant]
     Indication: HYPERLIPIDAEMIA
     Route: 048
  16. PANITUMUMAB [Suspect]
     Indication: COLORECTAL CANCER METASTATIC
     Dosage: 6 MG/KG, Q2WK
     Route: 041
     Dates: start: 20100730, end: 20101022
  17. ITOROL [Concomitant]
     Indication: ANGINA PECTORIS
     Route: 048
  18. FLUOROURACIL [Suspect]
     Indication: COLORECTAL CANCER
     Route: 040
     Dates: start: 20100730, end: 20101024
  19. CORTICOSTEROIDS [Concomitant]
     Indication: PROPHYLAXIS
     Route: 065
  20. EMEND [Concomitant]
     Indication: PROPHYLAXIS OF NAUSEA AND VOMITING
     Route: 048
     Dates: start: 20100702, end: 20101022

REACTIONS (5)
  - STOMATITIS [None]
  - PLATELET COUNT DECREASED [None]
  - INTERSTITIAL LUNG DISEASE [None]
  - RASH [None]
  - PARONYCHIA [None]
